FAERS Safety Report 20560034 (Version 1)
Quarter: 2022Q1

REPORT INFORMATION
  Report Type: Report from Study
  Country: NL (occurrence: NL)
  Receive Date: 20220307
  Receipt Date: 20220307
  Transmission Date: 20220423
  Serious: Yes (Other)
  Sender: FDA-Public Use
  Company Number: NL-PFIZER INC-202200306305

PATIENT
  Age: 7 Month
  Sex: Male

DRUGS (4)
  1. SIROLIMUS [Suspect]
     Active Substance: SIROLIMUS
     Indication: Angiosarcoma
     Dosage: 0.1 MG, 2X/DAY (STARTING DOSE)
  2. SIROLIMUS [Suspect]
     Active Substance: SIROLIMUS
     Indication: Haemangioma-thrombocytopenia syndrome
  3. TRIMOXAZOLE-BC [Concomitant]
     Indication: Angiosarcoma
     Dosage: UNK UNK, 2X/DAY (EVERY 12 HRS)
  4. TRIMOXAZOLE-BC [Concomitant]
     Indication: Haemangioma-thrombocytopenia syndrome

REACTIONS (3)
  - Viral infection [Recovered/Resolved]
  - Ophthalmia neonatorum [Recovered/Resolved]
  - Off label use [Unknown]
